FAERS Safety Report 7955336-4 (Version None)
Quarter: 2011Q4

REPORT INFORMATION
  Report Type: 
  Country: None (occurrence: None)
  Receive Date: 20111202
  Receipt Date: 20111121
  Transmission Date: 20120403
  Serious: Yes (Hospitalization, Other)
  Sender: FDA-Public Use
  Company Number: US-ELI_LILLY_AND_COMPANY-US201105004153

PATIENT
  Sex: Female

DRUGS (11)
  1. FORTEO [Suspect]
     Indication: OSTEOPOROSIS
     Dosage: 20 UG, QD
     Dates: start: 20110401, end: 20110701
  2. FORTEO [Suspect]
     Dosage: 20 UG, QD
  3. OXYCODONE HCL [Concomitant]
  4. LISINOPRIL [Concomitant]
  5. FLUOXETINE [Concomitant]
  6. CRESTOR [Concomitant]
  7. CLONAZEPAM [Concomitant]
  8. CELEBREX [Concomitant]
  9. COUMADIN [Concomitant]
  10. FORTEO [Suspect]
     Dosage: 20 UG, QD
     Dates: start: 20110701
  11. ACTIVELLA [Concomitant]

REACTIONS (2)
  - BLOOD PRESSURE FLUCTUATION [None]
  - ARTHROPATHY [None]
